FAERS Safety Report 5338199-5 (Version None)
Quarter: 2007Q2

REPORT INFORMATION
  Report Type: 
  Country: None (occurrence: None)
  Receive Date: 20070327
  Receipt Date: 20061206
  Transmission Date: 20071010
  Serious: No
  Sender: FDA-Public Use
  Company Number: 233516

PATIENT
  Age: 60 Year
  Sex: Female

DRUGS (1)
  1. AVASTIN [Suspect]
     Indication: MALIGNANT MELANOMA

REACTIONS (2)
  - BLOOD PRESSURE FLUCTUATION [None]
  - HEADACHE [None]
